FAERS Safety Report 8458145-5 (Version None)
Quarter: 2012Q2

REPORT INFORMATION
  Report Type: 
  Country: None (occurrence: None)
  Receive Date: 20120622
  Receipt Date: 20120612
  Transmission Date: 20120825
  Serious: Yes (Hospitalization, Other)
  Sender: FDA-Public Use
  Company Number: US-JNJFOC-20120606296

PATIENT
  Sex: Female
  Weight: 81.65 kg

DRUGS (8)
  1. VITAMINS NOS [Concomitant]
     Route: 048
  2. REMICADE [Suspect]
     Route: 042
     Dates: start: 20120601
  3. PREDNISONE TAB [Suspect]
     Indication: PLATELET COUNT DECREASED
     Dosage: DOSE,FREQUENCY UNSPECIFIED TAKEN DAILY.
     Route: 048
     Dates: start: 20120601
  4. REMICADE [Suspect]
     Indication: RHEUMATOID ARTHRITIS
     Route: 042
  5. METHOTREXATE [Suspect]
     Indication: RHEUMATOID ARTHRITIS
     Route: 065
     Dates: start: 20120601
  6. NEXIUM [Concomitant]
     Indication: GASTROOESOPHAGEAL REFLUX DISEASE
     Route: 048
  7. SYNTHROID [Concomitant]
     Indication: HYPOTHYROIDISM
     Dosage: DOSE, FREQUENCY UNSPECIFIED TAKEN DAILY
     Route: 048
     Dates: start: 19720101
  8. CELEBREX [Concomitant]
     Indication: PAIN
     Route: 048
     Dates: end: 20100101

REACTIONS (9)
  - PLATELET COUNT DECREASED [None]
  - GINGIVAL BLEEDING [None]
  - INTERVERTEBRAL DISC PROTRUSION [None]
  - SKIN DISCOLOURATION [None]
  - FEELING ABNORMAL [None]
  - ABDOMINAL DISCOMFORT [None]
  - SPINAL DISORDER [None]
  - HAEMORRHAGE [None]
  - PRODUCT QUALITY ISSUE [None]
